FAERS Safety Report 22179024 (Version 1)
Quarter: 2023Q2

REPORT INFORMATION
  Report Type: Spontaneous
  Country: US (occurrence: US)
  Receive Date: 20230406
  Receipt Date: 20230406
  Transmission Date: 20230721
  Serious: No
  Sender: FDA-Public Use
  Company Number: US-JNJFOC-20230364183

PATIENT
  Age: 61 Year
  Sex: Female

DRUGS (1)
  1. SUDAFED 24 HOUR [Suspect]
     Active Substance: PSEUDOEPHEDRINE HYDROCHLORIDE
     Indication: Nasopharyngitis
     Dosage: 1 TABLET, PRODUCT START DATE: YESTERDAY MORNING
     Route: 065
     Dates: start: 20230322

REACTIONS (2)
  - Drug ineffective [Unknown]
  - Overdose [Unknown]

NARRATIVE: CASE EVENT DATE: 20230322
